FAERS Safety Report 10561671 (Version 1)
Quarter: 2014Q4

REPORT INFORMATION
  Report Type: Spontaneous
  Country: JP (occurrence: JP)
  Receive Date: 20141103
  Receipt Date: 20141103
  Transmission Date: 20150529
  Serious: Yes (Hospitalization)
  Sender: FDA-Public Use
  Company Number: JP-009507513-1410JPN016329

PATIENT
  Sex: Female

DRUGS (1)
  1. TOREMIFENE CITRATE [Suspect]
     Active Substance: TOREMIFENE CITRATE
     Indication: BREAST CANCER
     Dosage: 120 MG, QD
     Route: 048
     Dates: start: 20140820, end: 20140910

REACTIONS (2)
  - Psychiatric decompensation [Not Recovered/Not Resolved]
  - Hypokalaemia [Not Recovered/Not Resolved]

NARRATIVE: CASE EVENT DATE: 20140910
